FAERS Safety Report 8028144-6 (Version None)
Quarter: 2011Q4

REPORT INFORMATION
  Report Type: 
  Country: None (occurrence: None)
  Receive Date: 20111130
  Receipt Date: 20110414
  Transmission Date: 20120403
  Serious: Yes (Hospitalization, Other)
  Sender: FDA-Public Use
  Company Number: US200910001791

PATIENT
  Age: 56 Year
  Sex: Female
  Weight: 79.4 kg

DRUGS (12)
  1. ENABLEX /01760401/ (DARIFENACIN) [Concomitant]
  2. TRANDOLAPRIL [Concomitant]
  3. HYDROCHLOROTHIAZIDE [Concomitant]
  4. EXENATIDE 5MCG PEN, DISPOSABLE DEVICE (EXENATIDE PEN (5MCG) PEN,DISPOS [Concomitant]
  5. AMBIEN CR [Concomitant]
  6. GLIPIZIDE [Concomitant]
  7. PROTONIX [Concomitant]
  8. ZOFRAN [Concomitant]
  9. BYETTA [Suspect]
     Dosage: 5 UG, 2.D ; 10 UG, 2/D ; 10 UG, 2/D ; 5 UG, 2/D
  10. BYETTA [Suspect]
     Dosage: 5 UG, 2.D ; 10 UG, 2/D ; 10 UG, 2/D ; 5 UG, 2/D
     Dates: start: 20090601, end: 20090615
  11. ACTOS /SCH/ (PIOGLITAZONE HYDROCHLORIDE) [Concomitant]
  12. ASPIRIN [Concomitant]

REACTIONS (21)
  - SINUSITIS [None]
  - DRUG INTERACTION [None]
  - NAUSEA [None]
  - VOMITING [None]
  - DEHYDRATION [None]
  - DYSPEPSIA [None]
  - MUSCLE TWITCHING [None]
  - FLATULENCE [None]
  - PANCREATITIS [None]
  - GASTRITIS [None]
  - ABDOMINAL DISTENSION [None]
  - OFF LABEL USE [None]
  - WEIGHT DECREASED [None]
  - IMPAIRED GASTRIC EMPTYING [None]
  - BLOOD CHOLESTEROL INCREASED [None]
  - BLOOD GLUCOSE INCREASED [None]
  - DECREASED APPETITE [None]
  - PANIC ATTACK [None]
  - HYPOTENSION [None]
  - GASTROOESOPHAGEAL REFLUX DISEASE [None]
  - ERUCTATION [None]
